FAERS Safety Report 7953986-2 (Version None)
Quarter: 2011Q4

REPORT INFORMATION
  Report Type: 
  Country: None (occurrence: None)
  Receive Date: 20111202
  Receipt Date: 20111202
  Transmission Date: 20120403
  Serious: Yes (Hospitalization)
  Sender: FDA-Public Use
  Company Number: None

PATIENT
  Age: 37 Year
  Sex: Female
  Weight: 58.967 kg

DRUGS (1)
  1. MINOXIDIL [Suspect]
     Indication: ALOPECIA
     Dosage: 2 PERCENT
     Route: 061
     Dates: start: 20110704, end: 20111106

REACTIONS (3)
  - TACHYCARDIA [None]
  - PALPITATIONS [None]
  - MENSTRUATION IRREGULAR [None]
